FAERS Safety Report 6146904-3 (Version None)
Quarter: 2009Q2

REPORT INFORMATION
  Report Type: 
  Country: None (occurrence: None)
  Receive Date: 20090407
  Receipt Date: 20090331
  Transmission Date: 20091009
  Serious: Yes (Other)
  Sender: FDA-Public Use
  Company Number: DE-ABBOTT-09P-062-0563001-00

PATIENT
  Sex: Male

DRUGS (7)
  1. HUMIRA [Suspect]
     Indication: CROHN'S DISEASE
     Dates: start: 20081117, end: 20090105
  2. HUMIRA [Suspect]
     Dates: start: 20081104
  3. HUMIRA [Suspect]
     Dates: start: 20081020
  4. HUMIRA [Suspect]
     Dosage: 160MG
     Dates: start: 20081006
  5. AZATHIOPRINE [Concomitant]
     Indication: DRUG USE FOR UNKNOWN INDICATION
     Dates: start: 20020101, end: 20081117
  6. COLIFOAM [Concomitant]
     Indication: DRUG USE FOR UNKNOWN INDICATION
  7. DECORTIN [Concomitant]
     Indication: DRUG USE FOR UNKNOWN INDICATION

REACTIONS (4)
  - COUGH [None]
  - DYSPNOEA [None]
  - PYREXIA [None]
  - TUBERCULOSIS [None]
